FAERS Safety Report 10920241 (Version 1)
Quarter: 2015Q1

REPORT INFORMATION
  Report Type: Report from Study
  Country: UY (occurrence: UY)
  Receive Date: 20150317
  Receipt Date: 20150317
  Transmission Date: 20150721
  Serious: Yes (Other)
  Sender: FDA-Public Use
  Company Number: UY-ROCHE-1500423

PATIENT
  Sex: Male

DRUGS (3)
  1. XELODA [Suspect]
     Active Substance: CAPECITABINE
     Indication: COLON CANCER METASTATIC
     Route: 048
     Dates: start: 20131021, end: 201412
  2. AVASTIN [Suspect]
     Active Substance: BEVACIZUMAB
     Indication: RECTAL CANCER METASTATIC
     Route: 065
     Dates: start: 20141021
  3. CISPLATIN. [Concomitant]
     Active Substance: CISPLATIN

REACTIONS (3)
  - Metastases to lung [Unknown]
  - Disease progression [Unknown]
  - Drug ineffective [Unknown]
